FAERS Safety Report 14771964 (Version 1)
Quarter: 2018Q2

REPORT INFORMATION
  Report Type: Spontaneous
  Country: US (occurrence: US)
  Receive Date: 20180417
  Receipt Date: 20180417
  Transmission Date: 20180711
  Serious: No
  Sender: FDA-Public Use
  Company Number: US-ASCENT PHARMACEUTICALS, INC.-2045906

PATIENT
  Age: 33 Year
  Sex: Male
  Weight: 83.18 kg

DRUGS (3)
  1. OXYCODONE AND ACETAMINOPHEN [Suspect]
     Active Substance: ACETAMINOPHEN\OXYCODONE HYDROCHLORIDE
     Indication: ARTHRITIS
     Route: 048
     Dates: start: 20180104, end: 20180108
  2. OXYCODONE AND ACETAMINOPHEN [Suspect]
     Active Substance: ACETAMINOPHEN\OXYCODONE HYDROCHLORIDE
     Indication: SPINAL COLUMN STENOSIS
     Route: 048
     Dates: start: 20180104, end: 20180108
  3. ALPRAZOLAM. [Concomitant]
     Active Substance: ALPRAZOLAM
     Route: 065

REACTIONS (12)
  - Decreased appetite [Unknown]
  - Dry mouth [Unknown]
  - Constipation [Unknown]
  - Headache [Unknown]
  - Pain in extremity [Unknown]
  - Insomnia [Unknown]
  - Dysuria [Unknown]
  - Pyrexia [Unknown]
  - Myalgia [Unknown]
  - Dizziness [Unknown]
  - Tremor [Unknown]
  - Poverty of speech [Unknown]

NARRATIVE: CASE EVENT DATE: 20180108
